FAERS Safety Report 7574899 (Version 4)
Quarter: 2014Q3

REPORT INFORMATION
  Report Type: Spontaneous
  Country: JP (occurrence: JP)
  Receive Date: 20100907
  Receipt Date: 20140908
  Transmission Date: 20150326
  Serious: Yes (Death, Other)
  Sender: FDA-Public Use
  Company Number: PHHY2010JP54857

PATIENT
  Age: 28 Year
  Sex: Female
  Weight: 45 kg

DRUGS (16)
  1. AFINITOR [Suspect]
     Active Substance: EVEROLIMUS
     Indication: METASTATIC RENAL CELL CARCINOMA
     Dosage: 10 MG DAILY
     Route: 048
     Dates: start: 20100528, end: 20100607
  2. AFINITOR [Suspect]
     Active Substance: EVEROLIMUS
     Dosage: 10 MG DAILY
     Route: 048
     Dates: start: 20100630, end: 20100730
  3. AFINITOR [Suspect]
     Active Substance: EVEROLIMUS
     Dosage: 5 MG DAILY
     Route: 048
     Dates: start: 20100731, end: 20100809
  4. THYRADIN S [Concomitant]
     Active Substance: LEVOTHYROXINE SODIUM
     Dosage: 100 UG, UNK
     Route: 048
     Dates: end: 20100809
  5. REFLEX [Concomitant]
     Active Substance: MIRTAZAPINE
     Dosage: 30 MG, UNK
     Route: 048
     Dates: start: 20100709, end: 20100809
  6. GASMOTIN [Concomitant]
     Active Substance: MOSAPRIDE CITRATE
     Dosage: 15 MG, UNK
     Route: 048
     Dates: start: 20100610, end: 20100801
  7. SOLANAX [Concomitant]
     Active Substance: ALPRAZOLAM
     Dosage: 0.8 MG, UNK
     Route: 048
     Dates: start: 20100629, end: 20100809
  8. DECADRON [Concomitant]
     Active Substance: DEXAMETHASONE
     Indication: METASTATIC RENAL CELL CARCINOMA
     Dosage: 1.65 MG, UNK
     Route: 041
     Dates: start: 20100622, end: 20100715
  9. IODINATED (125 I) HUMAN SERUM ALBUMIN [Concomitant]
     Dosage: 100 ML, UNK
     Dates: start: 20100617, end: 20100621
  10. DEPAS [Concomitant]
     Active Substance: ETIZOLAM
     Dosage: 1 MG, UNK
     Route: 048
     Dates: start: 20100721, end: 20100803
  11. MOBIC [Concomitant]
     Active Substance: MELOXICAM
     Indication: METASTATIC RENAL CELL CARCINOMA
     Dosage: 10 MG, UNK
     Route: 048
     Dates: end: 20100809
  12. PARIET [Concomitant]
     Active Substance: RABEPRAZOLE SODIUM
     Dosage: 10 MG, UNK
     Route: 048
     Dates: start: 20100623, end: 20100731
  13. PAXIL [Concomitant]
     Active Substance: PAROXETINE HYDROCHLORIDE
     Dosage: 20 MG, UNK
     Route: 048
     Dates: start: 20100629
  14. THYRADIN S [Concomitant]
     Active Substance: LEVOTHYROXINE SODIUM
     Dosage: 75 UG, UNK
     Route: 048
     Dates: start: 20100528
  15. PAXIL [Concomitant]
     Active Substance: PAROXETINE HYDROCHLORIDE
     Dosage: 10 MG, UNK
     Route: 048
     Dates: end: 20100716
  16. DECADRON [Concomitant]
     Active Substance: DEXAMETHASONE
     Dosage: 2 MG, UNK
     Route: 041
     Dates: end: 20100731

REACTIONS (11)
  - Cough [Fatal]
  - Pyrexia [Fatal]
  - Lymphocyte count decreased [Recovering/Resolving]
  - Oedema peripheral [Not Recovered/Not Resolved]
  - Depression [Not Recovered/Not Resolved]
  - Condition aggravated [Not Recovered/Not Resolved]
  - Malignant neoplasm progression [Fatal]
  - Hyperuricaemia [Not Recovered/Not Resolved]
  - Pleural effusion [Recovering/Resolving]
  - Anaemia [Recovering/Resolving]
  - Hypophagia [Fatal]

NARRATIVE: CASE EVENT DATE: 20100610
